FAERS Safety Report 14471412 (Version 1)
Quarter: 2018Q1

REPORT INFORMATION
  Report Type: Spontaneous
  Country: SE (occurrence: SE)
  Receive Date: 20180131
  Receipt Date: 20180131
  Transmission Date: 20180509
  Serious: Yes (Other)
  Sender: FDA-Public Use
  Company Number: SE-TEVA-2018-SE-852328

PATIENT
  Sex: Female

DRUGS (1)
  1. FENTANYL ACTAVIS [Suspect]
     Active Substance: FENTANYL
     Dosage: 100 MICROGRAM PER HOUR
     Route: 062

REACTIONS (2)
  - Intentional product misuse [Unknown]
  - Drug abuse [Unknown]
